FAERS Safety Report 7952468-1 (Version None)
Quarter: 2011Q4

REPORT INFORMATION
  Report Type: 
  Country: None (occurrence: None)
  Receive Date: 20111201
  Receipt Date: 20111123
  Transmission Date: 20120403
  Serious: Yes (Hospitalization)
  Sender: FDA-Public Use
  Company Number: US-CELGENEUS-163-21880-11092817

PATIENT
  Sex: Female

DRUGS (5)
  1. COUMADIN [Concomitant]
     Dosage: 1 MILLIGRAM
     Route: 065
     Dates: start: 20110201, end: 20110909
  2. REVLIMID [Suspect]
     Indication: MULTIPLE MYELOMA
     Dosage: 15 MILLIGRAM
     Route: 048
     Dates: start: 20110826, end: 20110901
  3. FENTANYL [Concomitant]
     Indication: PAIN
     Dosage: 25 MICROGRAM
     Route: 062
     Dates: start: 20101101
  4. COUMADIN [Concomitant]
     Route: 065
     Dates: start: 20101101
  5. ACYCLOVIR [Concomitant]
     Indication: PROPHYLAXIS
     Dosage: 400 MILLIGRAM
     Route: 048
     Dates: start: 20101101, end: 20110901

REACTIONS (2)
  - RASH PRURITIC [None]
  - INTERNATIONAL NORMALISED RATIO INCREASED [None]
